FAERS Safety Report 5315228-6 (Version None)
Quarter: 2007Q2

REPORT INFORMATION
  Report Type: 
  Country: None (occurrence: None)
  Receive Date: 20070502
  Receipt Date: 20070420
  Transmission Date: 20071010
  Serious: Yes (Disabling)
  Sender: FDA-Public Use
  Company Number: GB-PFIZER INC-2007030048

PATIENT
  Sex: Male

DRUGS (6)
  1. LYRICA [Suspect]
     Indication: GENERALISED ANXIETY DISORDER
     Route: 048
     Dates: start: 20061001, end: 20070123
  2. LYRICA [Suspect]
     Indication: PANIC ATTACK
  3. RISPERIDONE [Suspect]
     Indication: ANXIETY
     Route: 048
     Dates: start: 20050708
  4. ESCITALOPRAM OXALATE [Concomitant]
     Route: 048
     Dates: start: 20060427
  5. CLONAZEPAM [Concomitant]
     Route: 048
     Dates: start: 20051103
  6. RANITIDINE [Concomitant]

REACTIONS (6)
  - DIZZINESS [None]
  - DRY MOUTH [None]
  - ERECTILE DYSFUNCTION [None]
  - GASTROOESOPHAGEAL REFLUX DISEASE [None]
  - HYPOAESTHESIA [None]
  - URINARY INCONTINENCE [None]
